FAERS Safety Report 13765498 (Version 1)
Quarter: 2017Q3

REPORT INFORMATION
  Report Type: Report from Study
  Country: None (occurrence: BE)
  Receive Date: 20170718
  Receipt Date: 20170718
  Transmission Date: 20171127
  Serious: Yes (Other)
  Sender: FDA-Public Use
  Company Number: BE-ABBVIE-17P-013-1941963-00

PATIENT
  Age: 74 Year
  Sex: Female

DRUGS (12)
  1. OMEPRAZOLE. [Concomitant]
     Active Substance: OMEPRAZOLE
     Indication: GASTROOESOPHAGEAL REFLUX DISEASE
     Route: 048
     Dates: start: 2004
  2. 6-MERCAPTOPURINE [Suspect]
     Active Substance: MERCAPTOPURINE
     Route: 065
     Dates: start: 20160502, end: 20160601
  3. CLIPPER [Concomitant]
     Active Substance: BECLOMETHASONE DIPROPIONATE
     Route: 048
     Dates: start: 20160509, end: 20160610
  4. BEFACT FORTE [Concomitant]
     Indication: VITAMIN SUPPLEMENTATION
     Route: 048
     Dates: start: 20150312, end: 2016
  5. SALAZOPYRINE [Concomitant]
     Active Substance: SULFASALAZINE
     Indication: COLITIS ULCERATIVE
     Route: 048
     Dates: start: 20020312
  6. COLITOFALK SUPPO [Concomitant]
     Indication: COLITIS ULCERATIVE
     Dosage: 2/60 GR/ML
     Route: 054
     Dates: start: 20160419, end: 2016
  7. PRIORIN [Concomitant]
     Indication: ALOPECIA
     Route: 048
     Dates: start: 2003, end: 201604
  8. FLUCONAZOLE. [Concomitant]
     Active Substance: FLUCONAZOLE
     Indication: OESOPHAGEAL CANDIDIASIS
     Route: 048
     Dates: start: 20150630, end: 20150709
  9. STEOVIT D3 [Concomitant]
     Active Substance: CALCIUM CARBONATE\CHOLECALCIFEROL
     Indication: OSTEOPOROSIS PROPHYLAXIS
     Dosage: 1000/880 IU (INTERNATIONAL UNIT(S))
     Route: 048
     Dates: start: 20160425, end: 2016
  10. HUMIRA [Suspect]
     Active Substance: ADALIMUMAB
     Indication: COLITIS ULCERATIVE
     Route: 058
     Dates: start: 20140618, end: 20150902
  11. 6-MERCAPTOPURINE [Suspect]
     Active Substance: MERCAPTOPURINE
     Indication: COLITIS ULCERATIVE
     Route: 065
     Dates: start: 20160425, end: 20160501
  12. CLIPPER [Concomitant]
     Active Substance: BECLOMETHASONE DIPROPIONATE
     Indication: COLITIS ULCERATIVE
     Route: 048
     Dates: start: 20160425, end: 20160508

REACTIONS (1)
  - Drug-induced liver injury [Recovered/Resolved]

NARRATIVE: CASE EVENT DATE: 20160531
